FAERS Safety Report 8246755-X (Version None)
Quarter: 2012Q1

REPORT INFORMATION
  Report Type: 
  Country: None (occurrence: None)
  Receive Date: 20120330
  Receipt Date: 20120326
  Transmission Date: 20120608
  Serious: Yes (Death, Other)
  Sender: FDA-Public Use
  Company Number: US-PFIZER INC-2012078108

PATIENT
  Age: 22 Year
  Sex: Male

DRUGS (4)
  1. OXYCODONE HCL [Suspect]
  2. ALPRAZOLAM [Suspect]
  3. COCAINE [Suspect]
  4. ETHANOL [Suspect]

REACTIONS (3)
  - TOXICITY TO VARIOUS AGENTS [None]
  - ALCOHOL POISONING [None]
  - ACCIDENT [None]
